FAERS Safety Report 6703433-3 (Version None)
Quarter: 2010Q2

REPORT INFORMATION
  Report Type: 
  Country: None (occurrence: None)
  Receive Date: 20100423
  Receipt Date: 20100204
  Transmission Date: 20101027
  Serious: Yes (Hospitalization)
  Sender: FDA-Public Use
  Company Number: ALL1-2010-00620

PATIENT
  Age: 64 Year
  Sex: Female
  Weight: 53.5 kg

DRUGS (4)
  1. VYVANSE [Suspect]
     Indication: ATTENTION DEFICIT/HYPERACTIVITY DISORDER
     Dosage: 1X/DAY:QD,ORAL
     Route: 048
     Dates: start: 20070101, end: 20070101
  2. KLONOPIN [Concomitant]
  3. TRAZODONE HCL [Concomitant]
  4. PRISTIQ (DESVENLAFAXINE SUCCINATE) [Concomitant]

REACTIONS (5)
  - DIZZINESS [None]
  - HEADACHE [None]
  - MENTAL IMPAIRMENT [None]
  - PALPITATIONS [None]
  - SOMNOLENCE [None]
